FAERS Safety Report 15498620 (Version 1)
Quarter: 2018Q4

REPORT INFORMATION
  Report Type: Report from Study
  Country: GB (occurrence: GB)
  Receive Date: 20181015
  Receipt Date: 20181015
  Transmission Date: 20190205
  Serious: Yes (Other)
  Sender: FDA-Public Use
  Company Number: PHHY2018GB126051

PATIENT
  Sex: Female
  Weight: 88 kg

DRUGS (1)
  1. COSENTYX [Suspect]
     Active Substance: SECUKINUMAB
     Indication: PSORIASIS
     Dosage: 300 MG, UNK (WEEK 0- WEEK 3, 300MG. THEREAFTER, 300MG, MONTHLY )
     Route: 058
     Dates: start: 20180905

REACTIONS (1)
  - Asthma [Unknown]
